FAERS Safety Report 5141948-2 (Version None)
Quarter: 2006Q4

REPORT INFORMATION
  Report Type: 
  Country: None (occurrence: None)
  Receive Date: 20061102
  Receipt Date: 20061017
  Transmission Date: 20070319
  Serious: Yes (Hospitalization)
  Sender: FDA-Public Use
  Company Number: PHHO2006FR17292

PATIENT
  Age: 63 Year
  Sex: Male

DRUGS (7)
  1. CYCLOSPORINE [Suspect]
     Indication: RENAL TRANSPLANT
     Dosage: 325 MG, QD
     Route: 048
     Dates: start: 20050123, end: 20050405
  2. CYCLOSPORINE [Suspect]
     Dosage: 300 MG, QD
     Route: 048
     Dates: start: 20050406
  3. CORTICOSTEROIDS [Suspect]
     Indication: RENAL TRANSPLANT
     Dosage: 15 MG, QD
     Route: 048
     Dates: start: 20050120, end: 20050225
  4. CORTICOSTEROIDS [Suspect]
     Dosage: 12.5 MG, QD
     Route: 048
     Dates: start: 20050226
  5. MYCOPHENOLATE MOFETIL [Suspect]
     Indication: RENAL TRANSPLANT
     Dosage: 0.5 G, BID
     Route: 048
     Dates: start: 20050120
  6. DACLIZUMAB [Suspect]
     Indication: RENAL TRANSPLANT
     Dosage: 2 MG/KG, ONCE/SINGLE
     Route: 042
     Dates: start: 20050120, end: 20050120
  7. DACLIZUMAB [Suspect]
     Dosage: 1 MG/KG, ONCE/SINGLE
     Route: 042
     Dates: start: 20050203, end: 20050203

REACTIONS (1)
  - DIABETES MELLITUS NON-INSULIN-DEPENDENT [None]
